FAERS Safety Report 13903822 (Version 14)
Quarter: 2021Q4

REPORT INFORMATION
  Report Type: Report from Study
  Country: US (occurrence: US)
  Receive Date: 20170824
  Receipt Date: 20211012
  Transmission Date: 20220303
  Serious: Yes (Other)
  Sender: FDA-Public Use
  Company Number: US-JAZZ-2017-US-009135

PATIENT
  Age: 42 Year
  Sex: Female

DRUGS (9)
  1. XYREM [Suspect]
     Active Substance: SODIUM OXYBATE
     Indication: Narcolepsy
     Dosage: 2.25 GRAM, BID
     Route: 048
     Dates: start: 20170708, end: 201707
  2. XYREM [Suspect]
     Active Substance: SODIUM OXYBATE
     Indication: Cataplexy
     Dosage: DOSE ADJUSTMENT
     Route: 048
     Dates: start: 201707
  3. XYREM [Suspect]
     Active Substance: SODIUM OXYBATE
     Dosage: 2.75 GRAM, BID
     Route: 048
     Dates: start: 2017, end: 2017
  4. XYREM [Suspect]
     Active Substance: SODIUM OXYBATE
     Dosage: SLOWLY TITRATING BACK
     Route: 048
     Dates: start: 2017, end: 2017
  5. XYREM [Suspect]
     Active Substance: SODIUM OXYBATE
     Dosage: 3.25 GRAM, BID
     Route: 048
     Dates: start: 2017, end: 2017
  6. EPIPEN [Concomitant]
     Active Substance: EPINEPHRINE
     Indication: Food allergy
  7. MEDROL [Concomitant]
     Active Substance: METHYLPREDNISOLONE
     Indication: Food allergy
  8. HYDROXYZINE [Concomitant]
     Active Substance: HYDROXYZINE HYDROCHLORIDE
  9. ZYRTEC [Concomitant]
     Active Substance: CETIRIZINE HYDROCHLORIDE

REACTIONS (25)
  - Exophthalmos [Unknown]
  - Weight decreased [Unknown]
  - Gout [Unknown]
  - Heart rate increased [Unknown]
  - Psychomotor hyperactivity [Unknown]
  - Palpitations [Recovering/Resolving]
  - Eye pain [Recovering/Resolving]
  - Blood potassium decreased [Unknown]
  - Blood thyroid stimulating hormone abnormal [Unknown]
  - Head discomfort [Not Recovered/Not Resolved]
  - Influenza [Unknown]
  - Muscular weakness [Recovering/Resolving]
  - Blood sodium increased [Recovered/Resolved]
  - Hypoaesthesia [Unknown]
  - Dehydration [Unknown]
  - Feeling abnormal [Unknown]
  - Muscle spasms [Recovering/Resolving]
  - Confusional state [Recovering/Resolving]
  - Anxiety [Not Recovered/Not Resolved]
  - Memory impairment [Not Recovered/Not Resolved]
  - Fluid retention [Unknown]
  - Fatigue [Unknown]
  - Somnolence [Unknown]
  - Dyspnoea [Unknown]
  - Therapeutic response decreased [Not Recovered/Not Resolved]

NARRATIVE: CASE EVENT DATE: 20170701
